FAERS Safety Report 7004396-6 (Version None)
Quarter: 2010Q3

REPORT INFORMATION
  Report Type: 
  Country: None (occurrence: None)
  Receive Date: 20100921
  Receipt Date: 20100913
  Transmission Date: 20110219
  Serious: No
  Sender: FDA-Public Use
  Company Number: US-BIOGENIDEC-2010BI031876

PATIENT
  Age: 44 Year
  Sex: Female

DRUGS (2)
  1. TYSABRI [Suspect]
     Indication: MULTIPLE SCLEROSIS
     Route: 042
     Dates: start: 20080829, end: 20080926
  2. TYSABRI [Suspect]
     Route: 042
     Dates: start: 20100305

REACTIONS (5)
  - COGNITIVE DISORDER [None]
  - DRUG INEFFECTIVE [None]
  - FATIGUE [None]
  - HYPOAESTHESIA FACIAL [None]
  - MUSCLE SPASTICITY [None]
